FAERS Safety Report 24070939 (Version 1)
Quarter: 2024Q3

REPORT INFORMATION
  Report Type: Report from Study
  Country: JP (occurrence: JP)
  Receive Date: 20240710
  Receipt Date: 20240710
  Transmission Date: 20241017
  Serious: No
  Sender: ROCHE
  Company Number: JP-CHUGAI-2023046418

PATIENT
  Sex: Male

DRUGS (1)
  1. ALECENSA [Suspect]
     Active Substance: ALECTINIB HYDROCHLORIDE
     Indication: Lung neoplasm malignant
     Dosage: UNK
     Route: 048

REACTIONS (5)
  - Depression [Unknown]
  - Weight increased [Unknown]
  - Constipation [Unknown]
  - Pruritus [Unknown]
  - Cough [Unknown]

NARRATIVE: CASE EVENT DATE: 20230929
